FAERS Safety Report 6847441-0 (Version None)
Quarter: 2010Q3

REPORT INFORMATION
  Report Type: 
  Country: None (occurrence: None)
  Receive Date: 20100716
  Receipt Date: 20070828
  Transmission Date: 20110219
  Serious: No
  Sender: FDA-Public Use
  Company Number: PFIZER INC-2007070380

PATIENT

DRUGS (1)
  1. VARENICLINE [Suspect]

REACTIONS (1)
  - DRUG INEFFECTIVE [None]
